FAERS Safety Report 14924029 (Version 1)
Quarter: 2018Q2

REPORT INFORMATION
  Report Type: Spontaneous
  Country: US (occurrence: US)
  Receive Date: 20180522
  Receipt Date: 20180522
  Transmission Date: 20180711
  Serious: No
  Sender: FDA-Public Use
  Company Number: US-GALDERMA-US18008876

PATIENT
  Age: 43 Year
  Sex: Female

DRUGS (10)
  1. PROACTIV SOLUTION DAILY PROTECTION PLUS SUNSCREEN SPF 30 [Suspect]
     Active Substance: AVOBENZONE\HOMOSALATE\OCTINOXATE\OCTISALATE\OXYBENZONE
     Indication: ACNE
     Route: 061
     Dates: start: 20180218, end: 20180228
  2. PROACTIV GENTLE FORMULA CLARIFYING CLEANSER [Concomitant]
     Active Substance: SALICYLIC ACID
     Route: 061
     Dates: start: 20180218, end: 20180228
  3. PROACTIV MD ADAPALENE ACNE TREATMENT [Suspect]
     Active Substance: ADAPALENE
     Indication: ACNE
     Dosage: 0.1%
     Route: 061
     Dates: start: 20180218, end: 20180228
  4. PROACTIV SKIN PURIFYING MASK [Concomitant]
     Active Substance: SULFUR
     Route: 061
     Dates: start: 20180218, end: 20180228
  5. PROACTIV DEEP CLEANSING WASH [Concomitant]
     Active Substance: SALICYLIC ACID
     Route: 061
     Dates: start: 20180218, end: 20180228
  6. PROACTIV SOLUTION BLACKHEAD DISSOLVING [Concomitant]
     Active Substance: SALICYLIC ACID
     Route: 061
     Dates: start: 20180218, end: 20180228
  7. PROACTIV MD DEEP CLEANSING FACE WASH [Concomitant]
     Active Substance: COSMETICS
     Route: 061
     Dates: start: 20180218, end: 20180228
  8. PROACTIV GREEN TEA MOISTURIZER [Concomitant]
     Active Substance: COSMETICS
     Route: 061
     Dates: start: 20180218, end: 20180228
  9. PROACTIV EYE BRIGHTENING SERUM [Concomitant]
     Active Substance: COSMETICS
     Route: 061
     Dates: start: 20180218, end: 20180228
  10. PROACTIV MOISTURE REPAIR [Concomitant]
     Active Substance: COSMETICS
     Route: 061
     Dates: start: 20180218, end: 20180228

REACTIONS (3)
  - Skin burning sensation [Recovering/Resolving]
  - Blister [Recovering/Resolving]
  - Eyelid irritation [Recovering/Resolving]

NARRATIVE: CASE EVENT DATE: 20180222
